FAERS Safety Report 22130788 (Version 3)
Quarter: 2023Q2

REPORT INFORMATION
  Report Type: Report from Study
  Country: CN (occurrence: CN)
  Receive Date: 20230323
  Receipt Date: 20230627
  Transmission Date: 20230721
  Serious: Yes (Death, Life-Threatening, Hospitalization)
  Sender: FDA-Public Use
  Company Number: CN-PFIZER INC-PV202300053772

PATIENT
  Age: 65 Year
  Sex: Female
  Weight: 66 kg

DRUGS (2)
  1. PACLITAXEL [Suspect]
     Active Substance: PACLITAXEL
     Indication: Ovarian cancer
     Dosage: 136 MG, QW
     Route: 041
     Dates: start: 20230209, end: 20230209
  2. PACLITAXEL [Suspect]
     Active Substance: PACLITAXEL
     Dosage: 129 MG, QW
     Route: 041
     Dates: start: 20230310, end: 20230310

REACTIONS (1)
  - Small intestinal perforation [Fatal]

NARRATIVE: CASE EVENT DATE: 20230315
